FAERS Safety Report 21106502 (Version 2)
Quarter: 2022Q3

REPORT INFORMATION
  Report Type: Spontaneous
  Country: CN (occurrence: None)
  Receive Date: 20220720
  Receipt Date: 20220727
  Transmission Date: 20221027
  Serious: Yes (Hospitalization)
  Sender: FDA-Public Use
  Company Number: 2022A257208

PATIENT
  Age: 51 Year
  Sex: Female
  Weight: 54 kg

DRUGS (2)
  1. SEROQUEL [Suspect]
     Active Substance: QUETIAPINE FUMARATE
     Indication: Depression
     Route: 048
     Dates: start: 20220512, end: 20220527
  2. SEROQUEL [Suspect]
     Active Substance: QUETIAPINE FUMARATE
     Indication: Bipolar disorder
     Route: 048
     Dates: start: 20220512, end: 20220527

REACTIONS (2)
  - Gait disturbance [Recovering/Resolving]
  - Dizziness [Recovering/Resolving]

NARRATIVE: CASE EVENT DATE: 20220527
